FAERS Safety Report 4925807-3 (Version None)
Quarter: 2006Q1

REPORT INFORMATION
  Report Type: 
  Country: None (occurrence: None)
  Receive Date: 20060228
  Receipt Date: 20050324
  Transmission Date: 20060701
  Serious: No
  Sender: FDA-Public Use
  Company Number: US-GLAXOSMITHKLINE-A0551150A

PATIENT
  Age: 87 Year
  Sex: Female

DRUGS (5)
  1. LAMICTAL [Suspect]
     Indication: DEPRESSION
     Dosage: 200MG PER DAY
     Route: 048
  2. WELLBUTRIN [Concomitant]
  3. PAXIL [Concomitant]
  4. ARICEPT [Concomitant]
     Route: 065
  5. SEROQUEL [Concomitant]
     Route: 065

REACTIONS (1)
  - DRUG INEFFECTIVE [None]
